FAERS Safety Report 11845848 (Version 1)
Quarter: 2015Q4

REPORT INFORMATION
  Report Type: Spontaneous
  Country: US (occurrence: US)
  Receive Date: 20151217
  Receipt Date: 20151217
  Transmission Date: 20160305
  Serious: No
  Sender: FDA-Public Use
  Company Number: US-NOVOPROD-440582

PATIENT
  Age: 58 Year
  Sex: Female
  Weight: 102.6 kg

DRUGS (7)
  1. LYRICA [Suspect]
     Active Substance: PREGABALIN
     Indication: HAEMOLYTIC ANAEMIA
  2. LYRICA [Suspect]
     Active Substance: PREGABALIN
     Indication: NEUROPATHY PERIPHERAL
  3. NOVOLIN N [Concomitant]
     Active Substance: INSULIN HUMAN
     Indication: DIABETES MELLITUS
  4. LEVEMIR [Suspect]
     Active Substance: INSULIN DETEMIR
     Indication: DIABETES MELLITUS
     Dosage: 47 U, QD
     Route: 058
  5. LYRICA [Suspect]
     Active Substance: PREGABALIN
     Indication: INFLAMMATION
     Dosage: 50 MG, BID
     Route: 048
  6. LYRICA [Suspect]
     Active Substance: PREGABALIN
     Indication: LUPUS-LIKE SYNDROME
     Dosage: 100 MG, BID
  7. LYRICA [Suspect]
     Active Substance: PREGABALIN
     Indication: FIBROMYALGIA

REACTIONS (3)
  - Blood glucose increased [Recovered/Resolved]
  - Somnolence [Recovered/Resolved]
  - Inflammation [Unknown]
